FAERS Safety Report 21747595 (Version 2)
Quarter: 2023Q1

REPORT INFORMATION
  Report Type: Spontaneous
  Country: US (occurrence: US)
  Receive Date: 20221219
  Receipt Date: 20230109
  Transmission Date: 20230418
  Serious: No
  Sender: FDA-Public Use
  Company Number: US-BEH-2022153177

PATIENT
  Age: 58 Year
  Sex: Female

DRUGS (2)
  1. HIZENTRA [Suspect]
     Active Substance: HUMAN IMMUNOGLOBULIN G
     Indication: Immunodeficiency common variable
     Dosage: 8 GRAM, QW
     Route: 058
     Dates: start: 202108
  2. HIZENTRA [Suspect]
     Active Substance: HUMAN IMMUNOGLOBULIN G
     Dosage: 1 GRAM, QW
     Route: 058
     Dates: start: 202108

REACTIONS (7)
  - Pyrexia [Unknown]
  - Headache [Unknown]
  - Respiratory tract congestion [Unknown]
  - Fatigue [Unknown]
  - Nausea [Unknown]
  - Photophobia [Unknown]
  - Asthma [Unknown]

NARRATIVE: CASE EVENT DATE: 20221203
